FAERS Safety Report 7371517-5 (Version None)
Quarter: 2011Q1

REPORT INFORMATION
  Report Type: 
  Country: None (occurrence: None)
  Receive Date: 20110324
  Receipt Date: 20110315
  Transmission Date: 20110831
  Serious: Yes (Death)
  Sender: FDA-Public Use
  Company Number: US-CELGENEUS-163-21880-11031868

PATIENT
  Sex: Female

DRUGS (10)
  1. COUMADIN [Concomitant]
     Route: 065
  2. REVLIMID [Suspect]
     Indication: MYELODYSPLASTIC SYNDROME
     Dosage: 5 MILLIGRAM
     Route: 048
     Dates: start: 20100301
  3. EYE VITAMINS [Concomitant]
     Route: 065
  4. CARDIZEM [Concomitant]
     Route: 065
  5. LANTUS [Concomitant]
     Route: 065
  6. LASIX [Concomitant]
     Route: 065
  7. GLIPIZIDE [Concomitant]
     Route: 065
  8. METFORMIN [Concomitant]
     Route: 065
  9. DIGOXIN [Concomitant]
     Route: 065
  10. VITAMIN D [Concomitant]
     Route: 065

REACTIONS (1)
  - DEATH [None]
